FAERS Safety Report 7483242-0 (Version None)
Quarter: 2011Q2

REPORT INFORMATION
  Report Type: 
  Country: None (occurrence: None)
  Receive Date: 20110517
  Receipt Date: 20110505
  Transmission Date: 20111010
  Serious: Yes (Hospitalization, Other)
  Sender: FDA-Public Use
  Company Number: GB-AMGEN-GBRCT2010002111

PATIENT
  Age: 65 Year
  Sex: Female
  Weight: 73 kg

DRUGS (6)
  1. ETANERCEPT [Suspect]
     Indication: RHEUMATOID ARTHRITIS
     Dosage: 25 MG, 2 TIMES/WK
     Route: 058
     Dates: start: 20041008, end: 20080313
  2. SULPHASALAZINE [Concomitant]
     Dosage: UNKNOWN
     Dates: start: 19970615, end: 20081015
  3. ARTHROTEC [Concomitant]
     Dosage: UNKNOWN
  4. ARAVA [Concomitant]
  5. ACETAMINOPHEN AND CODEINE PHOSPHATE [Concomitant]
     Dosage: UNKNOWN
  6. ETANERCEPT [Suspect]
     Dosage: 25 MG, 2 TIMES/WK
     Route: 058
     Dates: start: 20080718

REACTIONS (1)
  - OESOPHAGEAL CARCINOMA [None]
